FAERS Safety Report 8223279-7 (Version None)
Quarter: 2012Q1

REPORT INFORMATION
  Report Type: 
  Country: None (occurrence: None)
  Receive Date: 20120321
  Receipt Date: 20120312
  Transmission Date: 20120608
  Serious: Yes (Other)
  Sender: FDA-Public Use
  Company Number: US-ROCHE-1044852

PATIENT
  Sex: Male
  Weight: 82.174 kg

DRUGS (3)
  1. ZELBORAF [Suspect]
     Indication: MALIGNANT MELANOMA
     Route: 048
     Dates: start: 20111227, end: 20120203
  2. METOPROLOL SUCCINATE [Concomitant]
     Indication: HYPERTENSION
     Route: 048
  3. DIOVAN [Concomitant]
     Indication: HYPERTENSION
     Route: 048

REACTIONS (6)
  - CHILLS [None]
  - HEPATIC ENZYME INCREASED [None]
  - PYREXIA [None]
  - ARTHRALGIA [None]
  - HYPOPHAGIA [None]
  - FATIGUE [None]
